FAERS Safety Report 12754426 (Version 2)
Quarter: 2016Q4

REPORT INFORMATION
  Report Type: Report from Study
  Country: DE (occurrence: DE)
  Receive Date: 20160916
  Receipt Date: 20161020
  Transmission Date: 20170207
  Serious: Yes (Other)
  Sender: FDA-Public Use
  Company Number: PHHY2016DE061350

PATIENT
  Sex: Female
  Weight: 87 kg

DRUGS (6)
  1. AFINITOR [Suspect]
     Active Substance: EVEROLIMUS
     Dosage: 10 MG, QD
     Route: 048
     Dates: start: 20151006, end: 20151104
  2. AFINITOR [Suspect]
     Active Substance: EVEROLIMUS
     Dosage: 5 MG, QD
     Route: 048
     Dates: start: 20151105, end: 20160711
  3. AFINITOR [Suspect]
     Active Substance: EVEROLIMUS
     Dosage: 2.50 MG, QD
     Route: 048
     Dates: start: 20160712, end: 20160815
  4. AROMASIN [Suspect]
     Active Substance: EXEMESTANE
     Indication: BREAST CANCER METASTATIC
     Dosage: 25 MG, QD
     Route: 048
     Dates: start: 20150905
  5. AFINITOR [Suspect]
     Active Substance: EVEROLIMUS
     Indication: BREAST CANCER METASTATIC
     Dosage: 5 MG, QD
     Route: 048
     Dates: start: 20150905, end: 20151005
  6. DEXAMETHASONE. [Suspect]
     Active Substance: DEXAMETHASONE
     Indication: DYSPNOEA
     Dosage: UNK
     Route: 065

REACTIONS (9)
  - Peripheral swelling [Recovered/Resolved]
  - Asthenia [Not Recovered/Not Resolved]
  - General physical health deterioration [Not Recovered/Not Resolved]
  - Concomitant disease aggravated [Recovered/Resolved]
  - Lymphoedema [Unknown]
  - Stomatitis [Recovered/Resolved]
  - Dyspnoea [Recovered/Resolved]
  - Dyspnoea [Recovered/Resolved]
  - Respiratory arrest [Unknown]

NARRATIVE: CASE EVENT DATE: 20151012
